FAERS Safety Report 4374097-1 (Version None)
Quarter: 2004Q2

REPORT INFORMATION
  Report Type: 
  Country: None (occurrence: None)
  Receive Date: 20040602
  Receipt Date: 20040206
  Transmission Date: 20050107
  Serious: Yes (Hospitalization)
  Sender: FDA-Public Use
  Company Number: 1558

PATIENT
  Sex: Male

DRUGS (2)
  1. AVINZA [Suspect]
     Indication: ARTHRALGIA
  2. HYDROCODONE/ACETAMINOPHEN [Concomitant]

REACTIONS (2)
  - ENCEPHALOPATHY [None]
  - HYPOVENTILATION [None]
